FAERS Safety Report 6415706-2 (Version None)
Quarter: 2009Q4

REPORT INFORMATION
  Report Type: 
  Country: None (occurrence: None)
  Receive Date: 20091022
  Receipt Date: 20091015
  Transmission Date: 20100525
  Serious: Yes (Other)
  Sender: FDA-Public Use
  Company Number: 2009PL000287

PATIENT
  Age: 83 Year
  Sex: Female

DRUGS (3)
  1. TRANDATE [Suspect]
     Indication: HYPERTENSION
     Dosage: PO
     Route: 048
     Dates: start: 19950101, end: 20090801
  2. DIOVAN [Concomitant]
  3. UNSPECIFIED GENERIC  MEDICATION FOR BLOOD  PRESSURE [Concomitant]

REACTIONS (4)
  - BLOOD PRESSURE DECREASED [None]
  - BLOOD PRESSURE FLUCTUATION [None]
  - HEART RATE INCREASED [None]
  - RENAL ARTERY STENOSIS [None]
